FAERS Safety Report 4527299-5 (Version None)
Quarter: 2004Q4

REPORT INFORMATION
  Report Type: 
  Country: None (occurrence: None)
  Receive Date: 20041130
  Receipt Date: 20040920
  Transmission Date: 20050328
  Serious: No
  Sender: FDA-Public Use
  Company Number: FABR-10787

PATIENT
  Age: 52 Year
  Sex: Male
  Weight: 73.0291 kg

DRUGS (7)
  1. FABRAZYME [Suspect]
     Indication: FABRY'S DISEASE
     Dosage: 3 MG/KG Q2WKS IV
     Route: 042
     Dates: start: 20030401
  2. CELLCEPT [Concomitant]
  3. PROGRAF [Concomitant]
  4. CAPTOPRIL [Concomitant]
  5. TOPROL-XL [Concomitant]
  6. ZOLOFT [Concomitant]
  7. ASPIRIN [Concomitant]

REACTIONS (1)
  - POLYCYTHAEMIA [None]
